FAERS Safety Report 8878123 (Version 1)
Quarter: 2012Q4

REPORT INFORMATION
  Report Type: Spontaneous
  Country: FR (occurrence: None)
  Receive Date: 20121026
  Receipt Date: 20121026
  Transmission Date: 20130627
  Serious: Yes (Hospitalization)
  Sender: FDA-Public Use
  Company Number: 2012CP000139

PATIENT
  Age: 43 Year
  Sex: Male

DRUGS (11)
  1. PERFALGAN [Suspect]
     Indication: PAIN
     Route: 042
     Dates: start: 20120919, end: 20120920
  2. ACUPAN [Suspect]
     Indication: PAIN
     Dates: start: 20120919, end: 20120920
  3. KETOPROFEN [Suspect]
     Indication: PAIN
     Dates: start: 20120919, end: 20120920
  4. MIDAZOLAM [Suspect]
     Indication: ANESTHESIA
     Route: 042
     Dates: start: 20120919
  5. SUFENTA [Suspect]
     Indication: ANESTHESIA
     Route: 042
     Dates: start: 20120919
  6. PENTOTHAL [Suspect]
     Indication: ANESTHESIA
     Route: 042
     Dates: start: 20120919
  7. TRACRIUM [Suspect]
     Indication: ANESTHESIA
     Route: 042
     Dates: start: 20120919
  8. KETAMINE [Suspect]
     Indication: ANESTHESIA
     Dates: start: 20120919
  9. VANCOMYCIN [Suspect]
     Indication: ANTIBIOTIC THERAPY
     Route: 042
     Dates: start: 20120919
  10. HYDROXYZINE HCL [Suspect]
     Indication: PREMEDICATION
  11. XANAX [Suspect]
     Indication: PREMEDICATION

REACTIONS (3)
  - Pancreatitis acute [None]
  - Gamma-glutamyltransferase increased [None]
  - Pancreatic steatosis [None]
